FAERS Safety Report 9044087 (Version 1)
Quarter: 2013Q1

REPORT INFORMATION
  Report Type: Spontaneous
  Country: ES (occurrence: ES)
  Receive Date: 20130130
  Receipt Date: 20130130
  Transmission Date: 20140127
  Serious: Yes (Other)
  Sender: FDA-Public Use
  Company Number: ES-SANOFI-AVENTIS-2013SA005533

PATIENT
  Age: 73 Year
  Sex: Male

DRUGS (13)
  1. CLEXANE [Suspect]
     Indication: THROMBOSIS PROPHYLAXIS
     Route: 058
     Dates: start: 20120811
  2. RIFALDIN [Suspect]
     Indication: PRODUCT USED FOR UNKNOWN INDICATION
     Dosage: 1 VIAL + 1 AMPOULE
     Route: 042
     Dates: start: 20120903, end: 20120914
  3. DAPTOMYCIN [Suspect]
     Indication: PRODUCT USED FOR UNKNOWN INDICATION
     Dosage: 1 VIAL?10 ML SOL PERFUS
     Route: 042
     Dates: start: 20120912, end: 20120912
  4. DAPTOMYCIN [Suspect]
     Indication: PRODUCT USED FOR UNKNOWN INDICATION
     Dosage: 1 VIAL?10 ML SOL PERFUS
     Route: 042
     Dates: start: 20120915, end: 20120915
  5. DAPTOMYCIN [Suspect]
     Indication: PRODUCT USED FOR UNKNOWN INDICATION
     Dosage: 1 VIAL?10 ML SOL PERFUS
     Route: 042
     Dates: start: 20120918, end: 20120918
  6. DAPTOMYCIN [Suspect]
     Indication: PRODUCT USED FOR UNKNOWN INDICATION
     Dosage: 1 VIAL?10 ML SOL PERFUS
     Route: 042
     Dates: start: 20120920, end: 20120920
  7. DAPTOMYCIN [Suspect]
     Indication: PRODUCT USED FOR UNKNOWN INDICATION
     Dosage: 1 VIAL?10 ML SOL PERFUS
     Route: 042
     Dates: start: 20120922, end: 20120922
  8. DAPTOMYCIN [Suspect]
     Indication: PRODUCT USED FOR UNKNOWN INDICATION
     Dosage: 1 VIAL?10 ML SOL PERFUS
     Route: 042
     Dates: start: 20120924, end: 20120924
  9. DAPTOMYCIN [Suspect]
     Indication: PRODUCT USED FOR UNKNOWN INDICATION
     Dosage: 1 VIAL?10 ML SOL PERFUS
     Route: 042
     Dates: start: 20120926, end: 20120926
  10. DAPTOMYCIN [Suspect]
     Indication: PRODUCT USED FOR UNKNOWN INDICATION
     Dosage: 1 VIAL?10 ML SOL PERFUS
     Route: 042
     Dates: start: 20120927
  11. DAPTOMYCIN [Suspect]
     Indication: PRODUCT USED FOR UNKNOWN INDICATION
     Dosage: 1 VIAL?10 ML SOL PERFUS
     Route: 042
     Dates: start: 20120910, end: 20120910
  12. METRONIDAZOL [Suspect]
     Indication: DIARRHOEA
     Route: 048
     Dates: start: 20120907, end: 20120914
  13. MEROPENEM [Suspect]
     Indication: PNEUMONIA
     Dosage: STRENGTH: 1000 MG
     Route: 042
     Dates: start: 20120907

REACTIONS (1)
  - Pancytopenia [Recovered/Resolved]
